FAERS Safety Report 9252303 (Version 1)
Quarter: 2013Q2

REPORT INFORMATION
  Report Type: Report from Study
  Country: TR (occurrence: TR)
  Receive Date: 20130424
  Receipt Date: 20130424
  Transmission Date: 20140414
  Serious: Yes (Other)
  Sender: FDA-Public Use
  Company Number: TR-US-EMD SERONO, INC.-7206866

PATIENT
  Sex: Male
  Weight: 29 kg

DRUGS (3)
  1. SAIZEN [Suspect]
     Indication: GROWTH HORMONE DEFICIENCY
     Route: 058
     Dates: start: 2009
  2. AIRFIX [Suspect]
     Indication: ASTHMA
     Route: 048
     Dates: start: 2004
  3. LEVOTIRON [Suspect]
     Indication: HYPOTHYROIDISM
     Route: 048
     Dates: start: 2009

REACTIONS (1)
  - Lipoma [Not Recovered/Not Resolved]
